FAERS Safety Report 6380692-0 (Version None)
Quarter: 2009Q3

REPORT INFORMATION
  Report Type: 
  Country: None (occurrence: None)
  Receive Date: 20090929
  Receipt Date: 20090922
  Transmission Date: 20100115
  Serious: Yes (Hospitalization, Other)
  Sender: FDA-Public Use
  Company Number: NZ-BAYER-200933079GPV

PATIENT
  Age: 13 Year
  Sex: Male

DRUGS (1)
  1. MAGNEVIST [Suspect]
     Indication: NUCLEAR MAGNETIC RESONANCE IMAGING
     Route: 040
     Dates: start: 20090503, end: 20090503

REACTIONS (23)
  - ABDOMINAL PAIN UPPER [None]
  - BALANCE DISORDER [None]
  - CARPAL TUNNEL SYNDROME [None]
  - DIZZINESS [None]
  - FATIGUE [None]
  - FEELING HOT [None]
  - FLUSHING [None]
  - GENERALISED ERYTHEMA [None]
  - HEART RATE INCREASED [None]
  - HYPERAEMIA [None]
  - MALAISE [None]
  - PALLOR [None]
  - PALPITATIONS [None]
  - PICA [None]
  - RASH MACULAR [None]
  - SCAR [None]
  - SEPTIC SHOCK [None]
  - SKIN DISCOLOURATION [None]
  - SYNCOPE [None]
  - TENSION [None]
  - THERMOANAESTHESIA [None]
  - VASODILATATION [None]
  - VISUAL IMPAIRMENT [None]
